FAERS Safety Report 9259410 (Version 2)
Quarter: 2013Q3

REPORT INFORMATION
  Report Type: Report from Study
  Country: GB (occurrence: GB)
  Receive Date: 20130427
  Receipt Date: 20130807
  Transmission Date: 20140515
  Serious: Yes (Death, Other)
  Sender: FDA-Public Use
  Company Number: GB-ROCHE-1218431

PATIENT
  Age: 89 Year
  Sex: Male
  Weight: 63 kg

DRUGS (6)
  1. RANIBIZUMAB [Suspect]
     Indication: PRODUCT USED FOR UNKNOWN INDICATION
     Route: 050
     Dates: start: 20110819
  2. RANIBIZUMAB [Suspect]
     Route: 050
     Dates: start: 20120504
  3. LEVOTHYROXINE [Concomitant]
     Route: 048
     Dates: start: 20040716
  4. LEVOTHYROXINE [Concomitant]
     Route: 048
     Dates: start: 20081128
  5. BISOPROLOL FUMARATE [Concomitant]
     Route: 065
     Dates: start: 20040823
  6. ASPIRIN [Concomitant]
     Route: 048
     Dates: start: 20120512

REACTIONS (1)
  - Prostate cancer [Fatal]
